FAERS Safety Report 7801622-8 (Version None)
Quarter: 2011Q4

REPORT INFORMATION
  Report Type: 
  Country: None (occurrence: None)
  Receive Date: 20111007
  Receipt Date: 20110927
  Transmission Date: 20120403
  Serious: Yes (Other)
  Sender: FDA-Public Use
  Company Number: ES-ELI_LILLY_AND_COMPANY-ES201109007723

PATIENT
  Sex: Female
  Weight: 57 kg

DRUGS (4)
  1. FORTEO [Suspect]
     Indication: OSTEOPOROSIS
     Dosage: 20 UG, QD
     Route: 058
     Dates: start: 20100401, end: 20110701
  2. DAFLON [Concomitant]
     Indication: PERIPHERAL VASCULAR DISORDER
     Dosage: 1 DF, BID
     Route: 048
  3. VALIUM [Concomitant]
     Indication: ARRHYTHMIA
     Dosage: 10 MG, QD
  4. IBUPROFEN [Concomitant]
     Indication: ANALGESIC THERAPY
     Dosage: 1 MG, EVERY 6 HRS
     Route: 048

REACTIONS (3)
  - BONE NEOPLASM [None]
  - HUMERUS FRACTURE [None]
  - URINE ABNORMALITY [None]
